FAERS Safety Report 18043178 (Version 5)
Quarter: 2021Q4

REPORT INFORMATION
  Report Type: Spontaneous
  Country: US (occurrence: US)
  Receive Date: 20200720
  Receipt Date: 20211025
  Transmission Date: 20220303
  Serious: Yes (Other)
  Sender: FDA-Public Use
  Company Number: US-PFIZER INC-2019255819

PATIENT
  Age: 69 Year
  Sex: Female

DRUGS (2)
  1. LYRICA [Suspect]
     Active Substance: PREGABALIN
     Indication: Neuropathy peripheral
     Dosage: 100 MG, THREE TIMES A DAY
     Route: 048
  2. LYRICA [Suspect]
     Active Substance: PREGABALIN
     Indication: Polyneuropathy

REACTIONS (6)
  - Glaucoma [Unknown]
  - Anxiety [Unknown]
  - Disturbance in attention [Unknown]
  - Feeling hot [Unknown]
  - Chronic obstructive pulmonary disease [Recovered/Resolved]
  - Migraine [Unknown]
